FAERS Safety Report 5833722-6 (Version None)
Quarter: 2008Q3

REPORT INFORMATION
  Report Type: 
  Country: None (occurrence: None)
  Receive Date: 20080804
  Receipt Date: 20080804
  Transmission Date: 20090109
  Serious: Yes (Hospitalization)
  Sender: FDA-Public Use
  Company Number: None

PATIENT
  Age: 49 Year
  Sex: Female
  Weight: 95.2554 kg

DRUGS (1)
  1. ENBREL [Suspect]
     Indication: PSORIATIC ARTHROPATHY
     Dates: start: 20080205, end: 20080722

REACTIONS (6)
  - ANXIETY [None]
  - DEPRESSION [None]
  - INFECTED CYST [None]
  - INJECTION SITE REACTION [None]
  - PATHOGEN RESISTANCE [None]
  - PSORIATIC ARTHROPATHY [None]
